FAERS Safety Report 23060888 (Version 3)
Quarter: 2023Q4

REPORT INFORMATION
  Report Type: Spontaneous
  Country: RU (occurrence: RU)
  Receive Date: 20231012
  Receipt Date: 20231201
  Transmission Date: 20240110
  Serious: Yes (Hospitalization)
  Sender: FDA-Public Use
  Company Number: RU-BIOGEN-2023BI01230826

PATIENT
  Age: 30 Year
  Sex: Male

DRUGS (5)
  1. TYSABRI [Suspect]
     Active Substance: NATALIZUMAB
     Indication: Relapsing-remitting multiple sclerosis
     Route: 050
     Dates: start: 201610
  2. TYSABRI [Suspect]
     Active Substance: NATALIZUMAB
     Route: 050
     Dates: start: 202012, end: 20230818
  3. TYSABRI [Suspect]
     Active Substance: NATALIZUMAB
     Route: 050
     Dates: start: 20231008
  4. Aquadetrim (vitamin D) [Concomitant]
     Indication: Product used for unknown indication
     Dosage: 2.5 THOUSAND IU DAILY
     Route: 050
  5. Vigantol (vitamin D) [Concomitant]
     Indication: Product used for unknown indication
     Dosage: 2.5 THOUSAND IU DAILY
     Route: 050

REACTIONS (1)
  - Testicular seminoma (pure) [Recovered/Resolved]

NARRATIVE: CASE EVENT DATE: 20230901
